FAERS Safety Report 23899099 (Version 2)
Quarter: 2025Q2

REPORT INFORMATION
  Report Type: Spontaneous
  Country: FR (occurrence: FR)
  Receive Date: 20240526
  Receipt Date: 20250402
  Transmission Date: 20250717
  Serious: Yes (Hospitalization, Other)
  Sender: AUROBINDO
  Company Number: FR-AFSSAPS-TS2024000535

PATIENT
  Age: 67 Year
  Sex: Male
  Weight: 85 kg

DRUGS (7)
  1. ATORVASTATIN [Suspect]
     Active Substance: ATORVASTATIN
     Indication: Ischaemic cardiomyopathy
     Dosage: UNK UNK, ONCE A DAY
     Route: 048
     Dates: start: 20240422, end: 20240428
  2. BISOPROLOL [Suspect]
     Active Substance: BISOPROLOL
     Indication: Ischaemic cardiomyopathy
     Dosage: UNK UNK, ONCE A DAY
     Route: 048
     Dates: start: 20240422, end: 20240428
  3. EZETIMIBE [Suspect]
     Active Substance: EZETIMIBE
     Indication: Ischaemic cardiomyopathy
     Dosage: UNK UNK, ONCE A DAY
     Route: 048
     Dates: start: 20240422, end: 20240428
  4. CLOPIDOGREL [Suspect]
     Active Substance: CLOPIDOGREL BISULFATE
     Indication: Ischaemic cardiomyopathy
     Dosage: 75 MILLIGRAM, ONCE A DAY
     Route: 048
     Dates: start: 20240422, end: 20240501
  5. KARDEGIC [Suspect]
     Active Substance: ASPIRIN DL-LYSINE
     Indication: Ischaemic cardiomyopathy
     Dosage: 1 DOSAGE FORM, ONCE A DAY
     Route: 048
     Dates: start: 20240422
  6. OPTIRAY [Suspect]
     Active Substance: IOVERSOL
     Indication: Angiocardiogram
     Route: 042
     Dates: start: 20240422, end: 20240422
  7. ENALAPRIL MALEATE\LERCANIDIPINE HYDROCHLORIDE [Suspect]
     Active Substance: ENALAPRIL MALEATE\LERCANIDIPINE HYDROCHLORIDE
     Indication: Product used for unknown indication
     Dosage: 1 DOSAGE FORM, ONCE A DAY
     Route: 048

REACTIONS (2)
  - Acute generalised exanthematous pustulosis [Not Recovered/Not Resolved]
  - Rash maculo-papular [Recovered/Resolved]

NARRATIVE: CASE EVENT DATE: 20240424
